FAERS Safety Report 10997822 (Version 1)
Quarter: 2015Q2

REPORT INFORMATION
  Report Type: Spontaneous
  Country: US (occurrence: US)
  Receive Date: 20150408
  Receipt Date: 20150408
  Transmission Date: 20150821
  Serious: No
  Sender: FDA-Public Use
  Company Number: US-BANPHARM-20143128

PATIENT
  Age: 36 Year
  Sex: Male
  Weight: 108.86 kg

DRUGS (2)
  1. BAYER BACK AND BODY EXTRA STRENGTH [Suspect]
     Active Substance: ASPIRIN\CAFFEINE
     Indication: ARTHRITIS
     Dosage: 2 DF,
     Dates: start: 2013
  2. ALEVE [Suspect]
     Active Substance: NAPROXEN SODIUM
     Indication: ARTHRITIS
     Dosage: 1 DF, PRN,
     Route: 048

REACTIONS (2)
  - Drug screen positive [Unknown]
  - Drug effect incomplete [Unknown]

NARRATIVE: CASE EVENT DATE: 2013
